FAERS Safety Report 9104408 (Version 1)
Quarter: 2013Q1

REPORT INFORMATION
  Report Type: Spontaneous
  Country: US (occurrence: US)
  Receive Date: 20130220
  Receipt Date: 20130220
  Transmission Date: 20140127
  Serious: Yes (Other)
  Sender: FDA-Public Use
  Company Number: PHHY2013US014542

PATIENT
  Age: 10 Year
  Sex: Male

DRUGS (11)
  1. METHADONE [Suspect]
     Indication: PAIN
     Dosage: 0.3 MG/KG, UNK
  2. METHADONE [Suspect]
     Dosage: 0.13 MG/KG, UNK
  3. LORAZEPAM [Concomitant]
     Indication: ANXIETY
  4. METHYLPREDNISOLONE [Concomitant]
     Indication: GRAFT VERSUS HOST DISEASE
  5. QUETIAPINE [Concomitant]
     Indication: ABNORMAL BEHAVIOUR
  6. MELATONIN [Concomitant]
     Indication: SLEEP DISORDER
  7. GABAPENTIN [Concomitant]
     Indication: PAIN
  8. CLONIDINE [Concomitant]
     Indication: HYPERTENSION
  9. DIURETICS [Concomitant]
     Indication: HYPERTENSION
  10. NALOXONE [Concomitant]
  11. CYTARABINE [Concomitant]

REACTIONS (8)
  - Sleep apnoea syndrome [Unknown]
  - Hypoxia [Unknown]
  - Hypopnoea [Unknown]
  - Apnoea [Unknown]
  - Dyspnoea [Unknown]
  - Respiratory alkalosis [Unknown]
  - Metabolic alkalosis [Unknown]
  - Somnolence [Unknown]
